FAERS Safety Report 4659862-5 (Version None)
Quarter: 2005Q2

REPORT INFORMATION
  Report Type: 
  Country: None (occurrence: None)
  Receive Date: 20050502
  Receipt Date: 20050214
  Transmission Date: 20051028
  Serious: Yes (Hospitalization)
  Sender: FDA-Public Use
  Company Number: 200510345US

PATIENT
  Age: 55 Year
  Sex: Female
  Weight: 77.3 kg

DRUGS (4)
  1. KETEK [Suspect]
     Indication: SINUSITIS
     Dosage: 500 MG BID PO
     Route: 048
     Dates: start: 20040812, end: 20040812
  2. PRILOSEC [Concomitant]
  3. LIPITOR [Concomitant]
  4. CELEXA [Concomitant]

REACTIONS (2)
  - ASTHENIA [None]
  - SYNCOPE [None]
